FAERS Safety Report 10545257 (Version 1)
Quarter: 2014Q4

REPORT INFORMATION
  Report Type: Spontaneous
  Country: FR (occurrence: FR)
  Receive Date: 20141027
  Receipt Date: 20141027
  Transmission Date: 20150529
  Serious: Yes (Hospitalization)
  Sender: FDA-Public Use
  Company Number: FR-PFIZER INC-2014288883

PATIENT
  Age: 14 Year
  Sex: Female

DRUGS (1)
  1. ADVILMED [Suspect]
     Active Substance: IBUPROFEN
     Dosage: UNK
     Dates: start: 201410

REACTIONS (1)
  - Acute kidney injury [Unknown]

NARRATIVE: CASE EVENT DATE: 20141014
